FAERS Safety Report 7661951-8 (Version None)
Quarter: 2011Q3

REPORT INFORMATION
  Report Type: 
  Country: None (occurrence: None)
  Receive Date: 20110805
  Receipt Date: 20101207
  Transmission Date: 20111222
  Serious: No
  Sender: FDA-Public Use
  Company Number: US-ABBOTT-10P-163-0690020-00

PATIENT
  Sex: Female
  Weight: 118.04 kg

DRUGS (30)
  1. CINNAMON [Concomitant]
     Indication: PRODUCT USED FOR UNKNOWN INDICATION
  2. BENICAR [Concomitant]
     Indication: PRODUCT USED FOR UNKNOWN INDICATION
  3. NIASPAN [Suspect]
  4. SIMCOR [Suspect]
     Indication: TOTAL CHOLESTEROL/HDL RATIO ABNORMAL
     Dosage: DAILY AT BEDTIME
     Dates: start: 20101101
  5. SIMCOR [Suspect]
     Indication: BLOOD TRIGLYCERIDES ABNORMAL
  6. FISH OIL [Concomitant]
     Indication: PRODUCT USED FOR UNKNOWN INDICATION
  7. NIASPAN [Suspect]
     Indication: TOTAL CHOLESTEROL/HDL RATIO ABNORMAL
     Dosage: DAILY AT BEDTIME
     Dates: end: 20101101
  8. NIASPAN [Suspect]
     Indication: ILL-DEFINED DISORDER
  9. NIASPAN [Suspect]
     Indication: BLOOD TRIGLYCERIDES ABNORMAL
  10. SIMCOR [Suspect]
  11. ASPIRIN [Concomitant]
     Indication: PRODUCT USED FOR UNKNOWN INDICATION
  12. CALCIUM ACETATE [Concomitant]
     Indication: PRODUCT USED FOR UNKNOWN INDICATION
     Dosage: SUPPLEMENTS
  13. M.V.I. [Concomitant]
     Indication: PRODUCT USED FOR UNKNOWN INDICATION
  14. NIASPAN [Suspect]
     Indication: LOW DENSITY LIPOPROTEIN INCREASED
  15. SIMCOR [Suspect]
  16. SIMCOR [Suspect]
     Indication: ILL-DEFINED DISORDER
  17. SIMCOR [Suspect]
     Indication: BLOOD CHOLESTEROL ABNORMAL
  18. SIMCOR [Suspect]
     Indication: LOW DENSITY LIPOPROTEIN INCREASED
  19. TOPROL-XL [Concomitant]
     Indication: PRODUCT USED FOR UNKNOWN INDICATION
  20. ALLEGRA [Concomitant]
     Indication: PRODUCT USED FOR UNKNOWN INDICATION
  21. FLOVENT [Concomitant]
     Indication: PRODUCT USED FOR UNKNOWN INDICATION
  22. GINGER [Concomitant]
     Indication: PRODUCT USED FOR UNKNOWN INDICATION
     Dosage: SUPPLEMENTS
  23. XOPENEX [Concomitant]
     Indication: PRODUCT USED FOR UNKNOWN INDICATION
  24. NIASPAN [Suspect]
  25. IPAPROPIUM BROMIDE [Concomitant]
     Indication: PRODUCT USED FOR UNKNOWN INDICATION
  26. NIASPAN [Suspect]
  27. SIMCOR [Suspect]
  28. NIASPAN [Suspect]
     Indication: BLOOD CHOLESTEROL ABNORMAL
  29. RISPERDAL [Concomitant]
     Indication: PRODUCT USED FOR UNKNOWN INDICATION
  30. COMBIVENT [Concomitant]
     Indication: PRODUCT USED FOR UNKNOWN INDICATION

REACTIONS (4)
  - FEELING HOT [None]
  - SKIN BURNING SENSATION [None]
  - PRURITUS [None]
  - FLUSHING [None]
